FAERS Safety Report 6868663-9 (Version None)
Quarter: 2010Q3

REPORT INFORMATION
  Report Type: 
  Country: None (occurrence: None)
  Receive Date: 20100722
  Receipt Date: 20080613
  Transmission Date: 20110219
  Serious: Yes (Hospitalization)
  Sender: FDA-Public Use
  Company Number: US-PFIZER INC-2008050053

PATIENT
  Age: 53 Year
  Sex: Female

DRUGS (2)
  1. CHANTIX [Suspect]
  2. LIPITOR [Concomitant]

REACTIONS (1)
  - CONVULSION [None]
